FAERS Safety Report 26037952 (Version 1)
Quarter: 2025Q4

REPORT INFORMATION
  Report Type: Spontaneous
  Country: US (occurrence: US)
  Receive Date: 20251112
  Receipt Date: 20251112
  Transmission Date: 20260117
  Serious: Yes (Life-Threatening, Hospitalization, Other)
  Sender: PHARMOBEDIENT CONSULTING, LLC
  Company Number: US-Pharmobedient-000455

PATIENT
  Age: 40 Year
  Sex: Male

DRUGS (1)
  1. HEPARIN SODIUM [Suspect]
     Active Substance: HEPARIN SODIUM
     Indication: Anticoagulant therapy

REACTIONS (4)
  - Heparin-induced thrombocytopenia [Recovered/Resolved]
  - Thrombophlebitis [Recovered/Resolved]
  - Deep vein thrombosis [Recovered/Resolved]
  - Haemorrhage [Recovered/Resolved]
